FAERS Safety Report 10338597 (Version 2)
Quarter: 2014Q3

REPORT INFORMATION
  Report Type: Spontaneous
  Country: US (occurrence: US)
  Receive Date: 20140724
  Receipt Date: 20140724
  Transmission Date: 20150326
  Serious: No
  Sender: FDA-Public Use
  Company Number: US-UNITED THERAPEUTICS-UTC-046318

PATIENT
  Sex: Female
  Weight: 58.96 kg

DRUGS (4)
  1. LETAIRIS [Suspect]
     Active Substance: AMBRISENTAN
     Indication: PULMONARY HYPERTENSION
     Dosage: 10 MG, QD
     Route: 065
     Dates: start: 201302
  2. ADCIRCA [Concomitant]
     Active Substance: TADALAFIL
  3. LETAIRIS [Suspect]
     Active Substance: AMBRISENTAN
     Indication: SCLERODERMA
  4. REMODULIN [Suspect]
     Active Substance: TREPROSTINIL
     Dosage: 0.082 UG/KG/MIN, CONTINUING
     Route: 058
     Dates: start: 20130404

REACTIONS (2)
  - Arthritis [Unknown]
  - Infusion site erythema [Unknown]
